FAERS Safety Report 11670371 (Version 1)
Quarter: 2015Q4

REPORT INFORMATION
  Report Type: Report from Study
  Country: BR (occurrence: BR)
  Receive Date: 20151028
  Receipt Date: 20151028
  Transmission Date: 20160304
  Serious: Yes (Other)
  Sender: FDA-Public Use
  Company Number: PHHY2015BR136268

PATIENT
  Sex: Male
  Weight: 76 kg

DRUGS (6)
  1. PROLOPA HBS [Concomitant]
     Active Substance: BENSERAZIDE\LEVODOPA
     Indication: PARKINSON^S DISEASE
     Route: 065
  2. EXODOS [Concomitant]
     Indication: DEPRESSION
     Route: 065
  3. ALOIS [Concomitant]
     Active Substance: MEMANTINE
     Indication: PRODUCT USED FOR UNKNOWN INDICATION
     Route: 065
  4. PROLOPA [Concomitant]
     Active Substance: BENSERAZIDE\LEVODOPA
     Indication: PARKINSON^S DISEASE
     Route: 065
  5. QUETIAPINE [Suspect]
     Active Substance: QUETIAPINE
     Indication: MID-LIFE CRISIS
     Route: 065
  6. TRAVATAN [Concomitant]
     Active Substance: TRAVOPROST
     Indication: OCULAR HYPERTENSION
     Dosage: 1 DRP AT NIGHT
     Route: 065

REACTIONS (4)
  - Ocular hypertension [Unknown]
  - Ocular discomfort [Unknown]
  - Thrombosis [Unknown]
  - Ocular hyperaemia [Recovering/Resolving]
